FAERS Safety Report 22661493 (Version 10)
Quarter: 2024Q1

REPORT INFORMATION
  Report Type: Report from Study
  Country: GB (occurrence: GB)
  Receive Date: 20230630
  Receipt Date: 20240304
  Transmission Date: 20240409
  Serious: Yes (Hospitalization)
  Sender: FDA-Public Use
  Company Number: GB-ARGENX-2023-ARGX-GB001389

PATIENT

DRUGS (2)
  1. EFGARTIGIMOD ALFA [Suspect]
     Active Substance: EFGARTIGIMOD ALFA
     Indication: Myasthenia gravis
     Dosage: 1030 MG IN 125ML ONCE WEEKLY INFUSION (1HR)
     Route: 065
     Dates: start: 202303
  2. VYVGART [Suspect]
     Active Substance: EFGARTIGIMOD ALFA-FCAB
     Dosage: UNK

REACTIONS (17)
  - Venous angioplasty [Unknown]
  - Dry mouth [Unknown]
  - Saliva altered [Unknown]
  - Malaise [Unknown]
  - Dizziness [Unknown]
  - Joint swelling [Unknown]
  - Myasthenia gravis [Unknown]
  - Venous occlusion [Unknown]
  - Fistula [Unknown]
  - Poor venous access [Unknown]
  - Poor venous access [Unknown]
  - Fungal infection [Unknown]
  - Myalgia [Unknown]
  - Muscular weakness [Unknown]
  - Confusional state [Unknown]
  - Loss of consciousness [Unknown]
  - Dyspnoea at rest [Unknown]

NARRATIVE: CASE EVENT DATE: 20230301
